FAERS Safety Report 14917421 (Version 1)
Quarter: 2018Q2

REPORT INFORMATION
  Report Type: Spontaneous
  Country: US (occurrence: US)
  Receive Date: 20180521
  Receipt Date: 20180521
  Transmission Date: 20180711
  Serious: Yes (Other)
  Sender: FDA-Public Use
  Company Number: US-009507513-1805USA005133

PATIENT
  Sex: Female

DRUGS (4)
  1. CARBOPLATIN. [Suspect]
     Active Substance: CARBOPLATIN
     Indication: CERVIX CARCINOMA
     Dosage: UNK, TAKEN FOR 5 CYCLES
  2. CELESTONE SOLUSPAN [Suspect]
     Active Substance: BETAMETHASONE ACETATE\BETAMETHASONE SODIUM PHOSPHATE
     Indication: CERVIX CARCINOMA
     Dosage: UNK
     Dates: start: 2014
  3. TOPOTECAN [Suspect]
     Active Substance: TOPOTECAN HYDROCHLORIDE
     Indication: CERVIX CARCINOMA
     Dosage: UNK, FOR 19 TREATMENTS
  4. CARBOPLATIN. [Suspect]
     Active Substance: CARBOPLATIN
     Dosage: UNK
     Dates: start: 2014

REACTIONS (2)
  - Diabetes mellitus [Unknown]
  - Cervix carcinoma [Unknown]
